FAERS Safety Report 16068542 (Version 2)
Quarter: 2019Q1

REPORT INFORMATION
  Report Type: Spontaneous
  Country: MY (occurrence: MY)
  Receive Date: 20190313
  Receipt Date: 20190318
  Transmission Date: 20190418
  Serious: Yes (Death)
  Sender: FDA-Public Use
  Company Number: MY-VIFOR (INTERNATIONAL) INC.-VIT-2019-02198

PATIENT
  Age: 80 Year
  Sex: Female

DRUGS (1)
  1. MIRCERA [Suspect]
     Active Substance: METHOXY POLYETHYLENE GLYCOL-EPOETIN BETA
     Indication: PRODUCT USED FOR UNKNOWN INDICATION
     Route: 065
     Dates: start: 20180207, end: 20181215

REACTIONS (1)
  - Cardiac disorder [Fatal]
